FAERS Safety Report 8201792-6 (Version None)
Quarter: 2012Q1

REPORT INFORMATION
  Report Type: 
  Country: None (occurrence: None)
  Receive Date: 20120312
  Receipt Date: 20120302
  Transmission Date: 20120608
  Serious: Yes (Hospitalization, Other)
  Sender: FDA-Public Use
  Company Number: FR-PFIZER INC-2012051070

PATIENT
  Age: 48 Year
  Sex: Female

DRUGS (4)
  1. RIFAMPICIN [Suspect]
     Indication: TUBERCULOSIS
     Dosage: 600 MG/DAY
  2. ETHAMBUTOL [Concomitant]
     Indication: TUBERCULOSIS
     Dosage: 120 MG/DAY
  3. RIFAMPICIN [Suspect]
     Dosage: 300 MG, SINGLE
  4. STREPTOMYCIN [Concomitant]
     Indication: TUBERCULOSIS
     Dosage: 500 MG, EVERY OTHER DAY FOR 3 MONTHS
     Route: 030

REACTIONS (7)
  - PROTHROMBIN TIME PROLONGED [None]
  - DISSEMINATED INTRAVASCULAR COAGULATION [None]
  - FUNCTIONAL GASTROINTESTINAL DISORDER [None]
  - CHOLANGITIS [None]
  - RENAL FAILURE ACUTE [None]
  - HAEMOLYSIS [None]
  - HYPERSENSITIVITY [None]
